FAERS Safety Report 6864868-1 (Version None)
Quarter: 2010Q3

REPORT INFORMATION
  Report Type: 
  Country: None (occurrence: None)
  Receive Date: 20100721
  Receipt Date: 20080407
  Transmission Date: 20110219
  Serious: No
  Sender: FDA-Public Use
  Company Number: US-PFIZER INC-2008031677

PATIENT
  Age: 60 Year
  Sex: Female
  Weight: 104.5 kg

DRUGS (4)
  1. CHANTIX [Suspect]
     Indication: SMOKING CESSATION THERAPY
     Dates: start: 20080319, end: 20080401
  2. COMBIVENT [Concomitant]
     Route: 055
  3. CLARITIN-D [Concomitant]
  4. BENICAR HCT [Concomitant]

REACTIONS (3)
  - HEAD DISCOMFORT [None]
  - SKIN DISCOLOURATION [None]
  - URTICARIA [None]
